FAERS Safety Report 5939797-8 (Version None)
Quarter: 2008Q4

REPORT INFORMATION
  Report Type: 
  Country: None (occurrence: None)
  Receive Date: 20081031
  Receipt Date: 20081031
  Transmission Date: 20090506
  Serious: No
  Sender: FDA-Public Use
  Company Number: None

PATIENT
  Age: 64 Year
  Sex: Female

DRUGS (7)
  1. METHOTREXATE [Suspect]
     Dates: start: 19940601, end: 20050101
  2. SYNTHROID [Concomitant]
  3. VITAMIN E [Concomitant]
  4. VITAMIN C AND CALCIUM [Concomitant]
  5. HUMIRA [Concomitant]
  6. ALEVE [Concomitant]
  7. FOLIC ACID [Concomitant]

REACTIONS (5)
  - DRUG TOXICITY [None]
  - HEPATIC CIRRHOSIS [None]
  - HEPATIC STEATOSIS [None]
  - LIVER INJURY [None]
  - TREATMENT NONCOMPLIANCE [None]
